FAERS Safety Report 9782079 (Version 4)
Quarter: 2014Q1

REPORT INFORMATION
  Report Type: Report from Study
  Country: CA (occurrence: CA)
  Receive Date: 20131226
  Receipt Date: 20140203
  Transmission Date: 20141002
  Serious: Yes (Other)
  Sender: FDA-Public Use
  Company Number: CA-ROCHE-1276057

PATIENT
  Age: 52 Year
  Sex: Female
  Weight: 77.1 kg

DRUGS (10)
  1. PERJETA [Suspect]
     Indication: HER-2 POSITIVE BREAST CANCER
     Route: 042
     Dates: start: 20130904
  2. PERJETA [Suspect]
     Route: 042
     Dates: start: 20131218, end: 20140108
  3. HERCEPTIN [Suspect]
     Indication: BREAST CANCER METASTATIC
     Route: 042
     Dates: start: 20040101, end: 201401
  4. TAXOTERE [Suspect]
     Indication: BREAST CANCER
     Route: 065
     Dates: start: 20130904, end: 201401
  5. OXYCODONE [Concomitant]
  6. TYLENOL [Concomitant]
  7. COVERSYL [Concomitant]
     Dosage: DAILY
     Route: 065
     Dates: start: 2011
  8. PAMIDRONATE [Concomitant]
     Route: 042
     Dates: start: 2006
  9. APO-OMEPRAZOLE [Concomitant]
     Route: 065
     Dates: start: 2007
  10. SUPEUDOL [Concomitant]
     Indication: ARTHRALGIA
     Route: 065
     Dates: start: 201306

REACTIONS (6)
  - Fall [Unknown]
  - Hip fracture [Unknown]
  - Rash macular [Unknown]
  - Pruritus [Unknown]
  - Burning sensation [Unknown]
  - Disease progression [Unknown]
